FAERS Safety Report 4314883-7 (Version None)
Quarter: 2004Q1

REPORT INFORMATION
  Report Type: 
  Country: None (occurrence: None)
  Receive Date: 20040310
  Receipt Date: 20040310
  Transmission Date: 20041129
  Serious: Yes (Life-Threatening)
  Sender: FDA-Public Use
  Company Number: None

PATIENT
  Age: 37 Year
  Sex: Female
  Weight: 55.3388 kg

DRUGS (1)
  1. VIOXX [Suspect]
     Indication: PAIN
     Dosage: 1 PILL ONES A DAY ORAL
     Route: 048
     Dates: start: 20040304, end: 20040404

REACTIONS (4)
  - DIARRHOEA [None]
  - DYSPEPSIA [None]
  - EYE SWELLING [None]
  - FATIGUE [None]
